FAERS Safety Report 10233696 (Version 1)
Quarter: 2014Q1

REPORT INFORMATION
  Report Type: Spontaneous
  Country: US (occurrence: None)
  Receive Date: 20140306
  Receipt Date: 20140306
  Transmission Date: 20141002
  Serious: Yes (Other)
  Sender: FDA-Public Use
  Company Number: 163-21880-13112044

PATIENT
  Age: 41 Year
  Sex: Male
  Weight: 102.06 kg

DRUGS (3)
  1. REVLIMID (LENALIDOMIDE) (25 MILLIGRAM, CAPSULES) [Suspect]
     Indication: PLASMA CELL MYELOMA
     Dosage: 25 MG, 21 IN 21 D
     Route: 048
     Dates: start: 20130226
  2. PREVACID (LANSOPRAZOLE) [Concomitant]
  3. ASPIRINE (ACETYLSALICYLIC ACID) [Concomitant]

REACTIONS (1)
  - Deep vein thrombosis [None]
